FAERS Safety Report 11126257 (Version 1)
Quarter: 2015Q2

REPORT INFORMATION
  Report Type: Spontaneous
  Country: US (occurrence: US)
  Receive Date: 20150520
  Receipt Date: 20150520
  Transmission Date: 20150821
  Serious: No
  Sender: FDA-Public Use
  Company Number: US-SHIRE-US201504421

PATIENT
  Sex: Female
  Weight: 58.96 kg

DRUGS (1)
  1. PENTASA [Suspect]
     Active Substance: MESALAMINE
     Indication: PRODUCT USED FOR UNKNOWN INDICATION
     Dosage: 1000 MG (TWO 500 MG CAPSULES), 4X/DAY:QID
     Route: 048
     Dates: start: 201407

REACTIONS (5)
  - Product tampering [Unknown]
  - Gastrointestinal disorder [Recovered/Resolved]
  - Malaise [Not Recovered/Not Resolved]
  - Gastric mucosa erythema [Not Recovered/Not Resolved]
  - Product quality issue [Unknown]

NARRATIVE: CASE EVENT DATE: 2015
